FAERS Safety Report 10381765 (Version 1)
Quarter: 2014Q3

REPORT INFORMATION
  Report Type: Spontaneous
  Country: US (occurrence: US)
  Receive Date: 20140813
  Receipt Date: 20140813
  Transmission Date: 20150326
  Serious: No
  Sender: FDA-Public Use
  Company Number: US-BAYER-2014-121289

PATIENT
  Age: 50 Year
  Sex: Female
  Weight: 63 kg

DRUGS (4)
  1. EFFEXOR [Concomitant]
     Active Substance: VENLAFAXINE HYDROCHLORIDE
     Dosage: 1 DF, QD
  2. KLONOPIN [Concomitant]
     Active Substance: CLONAZEPAM
     Dosage: 1 DF, BID
  3. ALEVE [Suspect]
     Active Substance: NAPROXEN SODIUM
     Dosage: 2 PILLS IN THE MORNING AND 1 IN THE EVENING
     Route: 048
     Dates: start: 2008
  4. SYMBICORT [Concomitant]
     Active Substance: BUDESONIDE\FORMOTEROL FUMARATE DIHYDRATE

REACTIONS (1)
  - Incorrect drug administration duration [None]

NARRATIVE: CASE EVENT DATE: 2008
